FAERS Safety Report 6747287-8 (Version None)
Quarter: 2010Q2

REPORT INFORMATION
  Report Type: 
  Country: None (occurrence: None)
  Receive Date: 20100528
  Receipt Date: 20100524
  Transmission Date: 20101027
  Serious: Yes (Death, Other)
  Sender: FDA-Public Use
  Company Number: A0861348A

PATIENT
  Age: 83 Year
  Sex: Male

DRUGS (2)
  1. ELTROMBOPAG [Suspect]
     Dosage: 50MG PER DAY
     Route: 048
     Dates: start: 20100107, end: 20100208
  2. CORTICOSTEROIDS [Concomitant]
     Indication: IDIOPATHIC THROMBOCYTOPENIC PURPURA
     Dates: start: 20070328

REACTIONS (2)
  - CARDIAC DISORDER [None]
  - CAROTID ARTERY DISEASE [None]
